FAERS Safety Report 6645288-1 (Version None)
Quarter: 2010Q1

REPORT INFORMATION
  Report Type: 
  Country: None (occurrence: None)
  Receive Date: 20100319
  Receipt Date: 20100319
  Transmission Date: 20100710
  Serious: Yes (Hospitalization, Other)
  Sender: FDA-Public Use
  Company Number: None

PATIENT
  Age: 70 Year
  Sex: Female
  Weight: 87.0906 kg

DRUGS (1)
  1. ZOLPIDEM [Suspect]
     Indication: SLEEP DISORDER THERAPY
     Dosage: 1 AT BEDTIME

REACTIONS (3)
  - AMNESIA [None]
  - NO THERAPEUTIC RESPONSE [None]
  - PRODUCT QUALITY ISSUE [None]
